FAERS Safety Report 18427897 (Version 1)
Quarter: 2020Q4

REPORT INFORMATION
  Report Type: Spontaneous
  Country: GB (occurrence: GB)
  Receive Date: 20201026
  Receipt Date: 20201026
  Transmission Date: 20210114
  Serious: Yes (Other)
  Sender: FDA-Public Use
  Company Number: GB-MYLANLABS-2020M1089085

PATIENT
  Age: 72 Year
  Sex: Female
  Weight: 44 kg

DRUGS (1)
  1. EFUDIX [Suspect]
     Active Substance: FLUOROURACIL
     Indication: SKIN DISORDER
     Dosage: 2 DOSAGE FORM, QD, THIN LAYER
     Route: 061
     Dates: start: 20200906, end: 20200923

REACTIONS (6)
  - Skin irritation [Recovering/Resolving]
  - Application site scab [Recovering/Resolving]
  - Skin reaction [Recovering/Resolving]
  - Paraesthesia oral [Not Recovered/Not Resolved]
  - Pruritus [Recovering/Resolving]
  - Lip pain [Not Recovered/Not Resolved]

NARRATIVE: CASE EVENT DATE: 20200908
